FAERS Safety Report 25415110 (Version 2)
Quarter: 2025Q3

REPORT INFORMATION
  Report Type: Spontaneous
  Country: JP (occurrence: JP)
  Receive Date: 20250609
  Receipt Date: 20250803
  Transmission Date: 20251020
  Serious: Yes (Other)
  Sender: ALEXION PHARMACEUTICALS
  Company Number: JP-ASTRAZENECA-250054853_030330_P_1

PATIENT
  Sex: Female

DRUGS (2)
  1. PULMICORT TURBUHALER [Suspect]
     Active Substance: BUDESONIDE
  2. SYMBICORT [Concomitant]
     Active Substance: BUDESONIDE\FORMOTEROL FUMARATE DIHYDRATE

REACTIONS (7)
  - Myocardial infarction [Unknown]
  - Product complaint [Unknown]
  - Cheilitis [Unknown]
  - Lip erosion [Unknown]
  - Paraesthesia oral [Unknown]
  - Tongue coated [Unknown]
  - Hypogeusia [Unknown]
